FAERS Safety Report 16250435 (Version 2)
Quarter: 2019Q2

REPORT INFORMATION
  Report Type: Report from Study
  Country: IT (occurrence: IT)
  Receive Date: 20190429
  Receipt Date: 20190502
  Transmission Date: 20190711
  Serious: Yes (Other)
  Sender: FDA-Public Use
  Company Number: IT-PFIZER INC-2019177058

PATIENT
  Age: 36 Year
  Sex: Female

DRUGS (2)
  1. COLCHICINE. [Suspect]
     Active Substance: COLCHICINE
     Indication: PERICARDITIS
     Dosage: 1 MILLIGRAM
     Route: 065
  2. PANTOPRAZOLE [Suspect]
     Active Substance: PANTOPRAZOLE
     Indication: PERICARDITIS
     Dosage: 40 MILLIGRAM, BID
     Route: 065

REACTIONS (3)
  - Disease recurrence [Unknown]
  - Product use in unapproved indication [Unknown]
  - Pericarditis [Unknown]
